FAERS Safety Report 9376846 (Version 1)
Quarter: 2013Q2

REPORT INFORMATION
  Report Type: Spontaneous
  Country: US (occurrence: None)
  Receive Date: 20130628
  Receipt Date: 20130628
  Transmission Date: 20140414
  Serious: Yes (Life-Threatening)
  Sender: FDA-Public Use
  Company Number: None

PATIENT
  Age: 28 Year
  Sex: Male
  Weight: 72 kg

DRUGS (1)
  1. VARENICLINE [Suspect]
     Indication: SMOKING CESSATION THERAPY
     Route: 048
     Dates: start: 20130314, end: 20130528

REACTIONS (5)
  - Agitation [None]
  - Irritability [None]
  - Anger [None]
  - Frustration [None]
  - Physical assault [None]
